FAERS Safety Report 22323109 (Version 1)
Quarter: 2023Q2

REPORT INFORMATION
  Report Type: Spontaneous
  Country: US (occurrence: None)
  Receive Date: 20230512
  Receipt Date: 20230512
  Transmission Date: 20230722
  Serious: Yes (Disabling)
  Sender: FDA-Public Use
  Company Number: None

PATIENT
  Age: 69 Year
  Sex: Female
  Weight: 65.25 kg

DRUGS (16)
  1. ESTRADIOL VAGINAL CREAM [Suspect]
     Active Substance: ESTRADIOL
     Indication: Carbuncle
     Dosage: FREQUENCY : EVERY OTHER WEEK;?
     Route: 067
     Dates: start: 20220414, end: 20220630
  2. ESTROGENS, CONJUGATED [Suspect]
     Active Substance: ESTROGENS, CONJUGATED
  3. DULOXETINE [Concomitant]
     Active Substance: DULOXETINE
  4. LEVOTHYROXINE [Concomitant]
     Active Substance: LEVOTHYROXINE
  5. MYRBETRIQ [Concomitant]
     Active Substance: MIRABEGRON
  6. PANTOPRAZOLE [Concomitant]
     Active Substance: PANTOPRAZOLE
  7. TOPIRAMATE [Concomitant]
     Active Substance: TOPIRAMATE
  8. AIMOVIG [Concomitant]
     Active Substance: ERENUMAB-AOOE
  9. Estradiol vag ring [Concomitant]
  10. Tins [Concomitant]
  11. CYCLOBENZAPRINE [Concomitant]
     Active Substance: CYCLOBENZAPRINE
  12. Mecline [Concomitant]
  13. NURTEC ODT [Concomitant]
     Active Substance: RIMEGEPANT SULFATE
  14. PREDNISONE [Concomitant]
     Active Substance: PREDNISONE
  15. VITAMINS [Concomitant]
     Active Substance: VITAMINS
  16. VITAMIN D NOS [Concomitant]
     Active Substance: VITAMIN D NOS

REACTIONS (3)
  - Application site irritation [None]
  - Application site pain [None]
  - Application site inflammation [None]

NARRATIVE: CASE EVENT DATE: 20220422
